FAERS Safety Report 9120698 (Version 1)
Quarter: 2013Q1

REPORT INFORMATION
  Report Type: Spontaneous
  Country: US (occurrence: US)
  Receive Date: 20130226
  Receipt Date: 20130226
  Transmission Date: 20140127
  Serious: Yes (Other)
  Sender: FDA-Public Use
  Company Number: US-PFIZER INC-2013063959

PATIENT
  Age: 10 Year
  Sex: Male

DRUGS (9)
  1. CYTARABINE [Suspect]
     Indication: ACUTE MYELOID LEUKAEMIA
     Dosage: THREE ROUNDS
     Route: 039
  2. LORAZEPAM [Suspect]
     Indication: ANXIETY
     Dosage: UNK
  3. METHYLPREDNISOLONE [Suspect]
     Indication: GRAFT VERSUS HOST DISEASE
     Dosage: UNK
  4. METHADONE [Suspect]
     Indication: PAIN
     Dosage: 0.3 MG/KG/DAY
  5. QUETIAPINE [Concomitant]
     Indication: ABNORMAL BEHAVIOUR
     Dosage: UNK
  6. MELATONIN [Concomitant]
     Indication: SLEEP DISORDER
     Dosage: UNK
  7. GABAPENTIN [Concomitant]
     Indication: PAIN
     Dosage: UNK
  8. CLONIDINE [Concomitant]
     Indication: HYPERTENSION
     Dosage: UNK
     Route: 062
  9. NALOXONE [Concomitant]
     Dosage: UNK

REACTIONS (9)
  - Sleep apnoea syndrome [Unknown]
  - Hypoxia [Unknown]
  - Renal failure [Unknown]
  - Cerebral atrophy [Unknown]
  - Cerebellar atrophy [Unknown]
  - Weight increased [Unknown]
  - Hypersomnia [Unknown]
  - Alopecia [Unknown]
  - Cushingoid [Unknown]
